FAERS Safety Report 14304525 (Version 1)
Quarter: 2017Q4

REPORT INFORMATION
  Report Type: Spontaneous
  Country: JP (occurrence: JP)
  Receive Date: 20171219
  Receipt Date: 20171219
  Transmission Date: 20180321
  Serious: Yes (Other)
  Sender: FDA-Public Use
  Company Number: JP-OTSUKA-JP-2014-18518

PATIENT

DRUGS (17)
  1. ABILIFY [Suspect]
     Active Substance: ARIPIPRAZOLE
     Indication: DEPRESSED MOOD
     Dosage: 2 MG, QD
     Route: 048
     Dates: start: 20131003
  2. TRAZODONE HYDROCHLORIDE. [Suspect]
     Active Substance: TRAZODONE HYDROCHLORIDE
     Indication: ANXIETY
     Dosage: 50 MG, QD
     Route: 048
     Dates: start: 20130627
  3. SERTRALINE [Suspect]
     Active Substance: SERTRALINE HYDROCHLORIDE
     Indication: DEPRESSION
     Dosage: DOSE INCREASED TO 100 MG ON 03-OCT-2013.
     Route: 048
     Dates: start: 20130829, end: 20131015
  4. LIMAS [Concomitant]
     Active Substance: LITHIUM CARBONATE
     Indication: ANXIETY
     Dosage: 200 MG, QD
     Route: 048
     Dates: start: 20130627, end: 20130926
  5. LUNESTA [Suspect]
     Active Substance: ESZOPICLONE
     Indication: DEPRESSED MOOD
     Dosage: UNK, DOSE REDUCED
     Route: 048
  6. LIMAS [Concomitant]
     Active Substance: LITHIUM CARBONATE
     Indication: DEPRESSED MOOD
  7. ABILIFY [Suspect]
     Active Substance: ARIPIPRAZOLE
     Indication: ANXIETY
     Dosage: DOSE REDUCED FROM 3 MG TO 2 MG ON 03-OCT-2013.
     Route: 048
     Dates: start: 20130627, end: 20131002
  8. TRAZODONE HYDROCHLORIDE. [Suspect]
     Active Substance: TRAZODONE HYDROCHLORIDE
     Indication: DEPRESSED MOOD
  9. JZOLOFT [Suspect]
     Active Substance: SERTRALINE HYDROCHLORIDE
     Indication: DEPRESSION
     Dosage: 25 MG, QD
     Route: 048
     Dates: start: 20130829, end: 20131002
  10. JZOLOFT [Suspect]
     Active Substance: SERTRALINE HYDROCHLORIDE
     Dosage: 100 MG, QD
     Route: 048
     Dates: start: 20131003, end: 20131015
  11. LUNESTA [Suspect]
     Active Substance: ESZOPICLONE
     Indication: ANXIETY
     Dosage: 2 MG, QD
     Route: 048
     Dates: start: 20130627
  12. ABILIFY [Suspect]
     Active Substance: ARIPIPRAZOLE
     Indication: ANXIETY
     Dosage: 3 MG, QD
     Route: 048
     Dates: start: 20130627, end: 20131002
  13. DESYREL [Suspect]
     Active Substance: TRAZODONE HYDROCHLORIDE
     Indication: ANXIETY
     Dosage: 50 MG, QD
     Route: 048
     Dates: start: 20130627
  14. DESYREL [Suspect]
     Active Substance: TRAZODONE HYDROCHLORIDE
     Indication: DEPRESSED MOOD
     Dosage: UNK, DOSE REDUCED
     Route: 048
  15. ESZOPICLONE. [Suspect]
     Active Substance: ESZOPICLONE
     Indication: ANXIETY
     Dosage: 2 MG, QD
     Route: 048
     Dates: start: 20130627
  16. ESZOPICLONE. [Suspect]
     Active Substance: ESZOPICLONE
     Indication: DEPRESSED MOOD
  17. GLIMICRON [Concomitant]
     Active Substance: GLICLAZIDE
     Indication: DIABETES MELLITUS
     Dosage: 40 MG, QD
     Route: 048
     Dates: start: 20130627

REACTIONS (2)
  - Delirium [Recovered/Resolved]
  - Extrapyramidal disorder [Recovered/Resolved]

NARRATIVE: CASE EVENT DATE: 20131003
